FAERS Safety Report 14884108 (Version 1)
Quarter: 2018Q2

REPORT INFORMATION
  Report Type: Report from Study
  Country: ES (occurrence: ES)
  Receive Date: 20180511
  Receipt Date: 20180511
  Transmission Date: 20180711
  Serious: Yes (Hospitalization)
  Sender: FDA-Public Use
  Company Number: ES-SHIRE-ES201817705

PATIENT

DRUGS (1)
  1. REVESTIVE [Suspect]
     Active Substance: TEDUGLUTIDE
     Indication: PRODUCT USED FOR UNKNOWN INDICATION
     Dosage: 3.5 MG/ 24 HR (0.35ML)
     Route: 058

REACTIONS (2)
  - Medication error [Unknown]
  - Pyrexia [Unknown]

NARRATIVE: CASE EVENT DATE: 20180426
